FAERS Safety Report 4520320-X (Version None)
Quarter: 2004Q4

REPORT INFORMATION
  Report Type: 
  Country: None (occurrence: None)
  Receive Date: 20041207
  Receipt Date: 20040924
  Transmission Date: 20050328
  Serious: Yes (Other)
  Sender: FDA-Public Use
  Company Number: US-GLAXOSMITHKLINE-A0527571A

PATIENT
  Age: 34 Year
  Sex: Female

DRUGS (3)
  1. COMBIVIR [Suspect]
     Indication: HIV INFECTION
     Dosage: 2TAB PER DAY
     Route: 048
     Dates: start: 20040518
  2. ZIDOVUDINE [Suspect]
     Indication: HIV INFECTION
     Route: 042
     Dates: start: 20041104, end: 20041104
  3. KALETRA [Concomitant]
     Indication: HIV INFECTION
     Dosage: 6CAP PER DAY
     Route: 048
     Dates: start: 20040518

REACTIONS (4)
  - DRUG EXPOSURE DURING PREGNANCY [None]
  - FOETAL DISORDER [None]
  - HYDRONEPHROSIS [None]
  - ULTRASOUND SCAN ABNORMAL [None]
